FAERS Safety Report 26115673 (Version 2)
Quarter: 2025Q4

REPORT INFORMATION
  Report Type: Spontaneous
  Country: EU (occurrence: EU)
  Receive Date: 20251203
  Receipt Date: 20251223
  Transmission Date: 20260118
  Serious: Yes (Hospitalization, Other)
  Sender: CATALYST PHARMA
  Company Number: EU-SANTHERA-SAN-002608

PATIENT

DRUGS (1)
  1. AGAMREE [Suspect]
     Active Substance: VAMOROLONE
     Indication: Duchenne muscular dystrophy
     Dosage: 5.4 MILLILITER 9 AM
     Route: 048
     Dates: start: 20250915

REACTIONS (7)
  - Embolism [Not Recovered/Not Resolved]
  - Tibia fracture [Unknown]
  - Stress fracture [Unknown]
  - Communication disorder [Unknown]
  - Fall [Unknown]
  - Systolic dysfunction [Unknown]
  - Anxiety [Unknown]

NARRATIVE: CASE EVENT DATE: 20250101
